FAERS Safety Report 6032427-9 (Version None)
Quarter: 2009Q1

REPORT INFORMATION
  Report Type: 
  Country: None (occurrence: None)
  Receive Date: 20090109
  Receipt Date: 20081229
  Transmission Date: 20090719
  Serious: Yes (Other)
  Sender: FDA-Public Use
  Company Number: FR-PFIZER INC-2006092988

PATIENT

DRUGS (30)
  1. SUNITINIB MALATE [Suspect]
     Indication: RENAL CANCER
     Dosage: 25 MG, UNK
     Route: 048
     Dates: start: 20050316
  2. ZOMETA [Concomitant]
     Indication: BONE NEOPLASM
     Route: 042
     Dates: start: 20050201, end: 20050201
  3. ZOMETA [Concomitant]
     Route: 042
     Dates: start: 20050315, end: 20050315
  4. ZOMETA [Concomitant]
     Route: 042
     Dates: start: 20050412, end: 20050412
  5. ZOMETA [Concomitant]
     Route: 042
     Dates: start: 20050510, end: 20050510
  6. ZOMETA [Concomitant]
     Route: 042
     Dates: start: 20050606, end: 20050606
  7. ZOMETA [Concomitant]
     Route: 042
     Dates: start: 20050705, end: 20050705
  8. ZOMETA [Concomitant]
     Route: 042
     Dates: start: 20050802, end: 20050802
  9. ZOMETA [Concomitant]
     Route: 042
     Dates: start: 20050830, end: 20050830
  10. ZOMETA [Concomitant]
     Route: 042
     Dates: start: 20050929, end: 20050929
  11. ACETAMINOPHEN [Concomitant]
     Indication: BACK PAIN
     Route: 048
     Dates: start: 20050405, end: 20050602
  12. RABEPRAZOLE SODIUM [Concomitant]
     Indication: ABDOMINAL PAIN UPPER
     Route: 048
     Dates: start: 20050405, end: 20050602
  13. RABEPRAZOLE SODIUM [Concomitant]
     Route: 048
     Dates: start: 20051024
  14. ROCGEL [Concomitant]
     Indication: ABDOMINAL PAIN UPPER
     Route: 048
     Dates: start: 20050405, end: 20050531
  15. PRIMPERAN TAB [Concomitant]
     Indication: NAUSEA
     Route: 048
     Dates: start: 20050806, end: 20050816
  16. PRIMPERAN TAB [Concomitant]
     Route: 048
     Dates: start: 20051011, end: 20051110
  17. PRIMPERAN TAB [Concomitant]
     Route: 048
     Dates: start: 20051210, end: 20051210
  18. PRIMPERAN TAB [Concomitant]
     Dates: start: 20050519, end: 20050525
  19. DAFALGAN [Concomitant]
     Indication: BACK PAIN
     Route: 048
     Dates: start: 20050523, end: 20050602
  20. TRAMADOL HYDROCHLORIDE AND ACETAMINOPHEN [Concomitant]
     Indication: BACK PAIN
     Route: 048
     Dates: start: 20050603, end: 20051225
  21. VOGALENE [Concomitant]
     Indication: NAUSEA
     Route: 048
     Dates: start: 20050707, end: 20050710
  22. ANAUSIN [Concomitant]
     Indication: NAUSEA
     Route: 048
     Dates: start: 20050605, end: 20050705
  23. FORLAX [Concomitant]
     Indication: CONSTIPATION
     Route: 048
     Dates: start: 20050803, end: 20050807
  24. FORLAX [Concomitant]
     Route: 048
     Dates: start: 20051026, end: 20051028
  25. FORLAX [Concomitant]
     Route: 048
     Dates: end: 20060628
  26. TRIMEBUTINE [Concomitant]
     Indication: CONSTIPATION
     Route: 048
     Dates: start: 20050808, end: 20050816
  27. SPECIAFOLDINE [Concomitant]
     Indication: ANAEMIA
     Route: 048
  28. TARDYFERON [Concomitant]
     Indication: ANAEMIA
     Route: 048
  29. BIRODOGYL [Concomitant]
     Indication: PAIN IN JAW
     Route: 048
     Dates: start: 20060220, end: 20060319
  30. NEOSTIGMINE [Concomitant]
     Indication: URINARY INCONTINENCE
     Route: 048
     Dates: start: 20050601, end: 20060701

REACTIONS (1)
  - BLOOD CREATINE PHOSPHOKINASE INCREASED [None]
